FAERS Safety Report 11552370 (Version 1)
Quarter: 2015Q3

REPORT INFORMATION
  Report Type: Spontaneous
  Country: US (occurrence: None)
  Receive Date: 20150924
  Receipt Date: 20150924
  Transmission Date: 20151125
  Serious: Yes (Life-Threatening, Disabling)
  Sender: FDA-Public Use
  Company Number: None

PATIENT
  Age: 50 Year
  Sex: Female
  Weight: 99.79 kg

DRUGS (11)
  1. TRAMADOL 50 MG [Suspect]
     Active Substance: TRAMADOL
     Indication: PAIN
     Dates: start: 20130922, end: 20150729
  2. LEVOTHYROXINE. [Concomitant]
     Active Substance: LEVOTHYROXINE
  3. VITAMINE D [Concomitant]
  4. ATORVASTATIN [Concomitant]
     Active Substance: ATORVASTATIN
  5. NAPROXEN. [Concomitant]
     Active Substance: NAPROXEN
  6. NEBULIZER [Concomitant]
     Active Substance: DEVICE
  7. FLUOXETINE [Concomitant]
     Active Substance: FLUOXETINE\FLUOXETINE HYDROCHLORIDE
  8. LEVOCETIRIZINE [Concomitant]
     Active Substance: LEVOCETIRIZINE
  9. AMLODIPINE [Concomitant]
     Active Substance: AMLODIPINE BESYLATE
  10. TRAMADOL 50 MG [Suspect]
     Active Substance: TRAMADOL
     Indication: TOOTHACHE
     Dates: start: 20130922, end: 20150729
  11. OMPERAZOLE [Concomitant]
     Active Substance: OMEPRAZOLE

REACTIONS (2)
  - Dyspnoea [None]
  - Choking [None]

NARRATIVE: CASE EVENT DATE: 20130924
